FAERS Safety Report 9155599 (Version 1)
Quarter: 2013Q1

REPORT INFORMATION
  Report Type: Spontaneous
  Country: BR (occurrence: BR)
  Receive Date: 20130311
  Receipt Date: 20130311
  Transmission Date: 20140127
  Serious: Yes (Other)
  Sender: FDA-Public Use
  Company Number: BR-ASTRAZENECA-2013SE14668

PATIENT
  Sex: Male

DRUGS (1)
  1. ATACAND [Suspect]
     Indication: HYPERTENSION
     Route: 048
     Dates: start: 201205

REACTIONS (3)
  - Blood pressure increased [Recovering/Resolving]
  - Dengue fever [Unknown]
  - Drug ineffective [Unknown]
